FAERS Safety Report 16383856 (Version 1)
Quarter: 2019Q2

REPORT INFORMATION
  Report Type: Spontaneous
  Country: US (occurrence: US)
  Receive Date: 20190426
  Receipt Date: 20190426
  Transmission Date: 20190711
  Serious: No
  Sender: FDA-Public Use
  Company Number: None

PATIENT
  Age: 65 Year
  Sex: Female

DRUGS (1)
  1. TALTZ [Suspect]
     Active Substance: IXEKIZUMAB
     Indication: PSORIATIC ARTHROPATHY
     Dosage: ?          OTHER DOSE:80MG (1 PEN);?
     Route: 058
     Dates: start: 201903

REACTIONS (4)
  - Injection site reaction [None]
  - Limb discomfort [None]
  - Cough [None]
  - Oropharyngeal pain [None]
